FAERS Safety Report 5919120-5 (Version None)
Quarter: 2008Q4

REPORT INFORMATION
  Report Type: 
  Country: None (occurrence: None)
  Receive Date: 20081014
  Receipt Date: 20081014
  Transmission Date: 20090506
  Serious: Yes (Other)
  Sender: FDA-Public Use
  Company Number: None

PATIENT
  Age: 45 Year
  Sex: Female
  Weight: 112.9457 kg

DRUGS (1)
  1. JANUVIA [Suspect]
     Indication: TYPE 2 DIABETES MELLITUS
     Dosage: 1 TAB QD PO
     Route: 048
     Dates: start: 20080903, end: 20080917

REACTIONS (3)
  - CLITORAL ENGORGEMENT [None]
  - DISTURBANCE IN SEXUAL AROUSAL [None]
  - PAIN [None]
